FAERS Safety Report 11788816 (Version 1)
Quarter: 2015Q4

REPORT INFORMATION
  Report Type: Spontaneous
  Country: US (occurrence: None)
  Receive Date: 20151130
  Receipt Date: 20151130
  Transmission Date: 20160305
  Serious: Yes (Disabling)
  Sender: FDA-Public Use
  Company Number: None

PATIENT
  Age: 42 Year
  Sex: Female
  Weight: 58.97 kg

DRUGS (1)
  1. SUCCINYLCHOLINE UNKNOWN MEDICAL RECORDS [Suspect]
     Active Substance: SUCCINYLCHOLINE
     Indication: SURGERY
     Dates: start: 20151123

REACTIONS (7)
  - Glossodynia [None]
  - Myalgia [None]
  - Headache [None]
  - Pain in jaw [None]
  - Eye disorder [None]
  - Neck pain [None]
  - Oropharyngeal pain [None]

NARRATIVE: CASE EVENT DATE: 20151123
